FAERS Safety Report 8133301-4 (Version None)
Quarter: 2012Q1

REPORT INFORMATION
  Report Type: 
  Country: None (occurrence: None)
  Receive Date: 20120213
  Receipt Date: 20120209
  Transmission Date: 20120608
  Serious: Yes (Death)
  Sender: FDA-Public Use
  Company Number: JP-BRISTOL-MYERS SQUIBB COMPANY-16372401

PATIENT
  Age: 73 Year
  Sex: Male
  Weight: 48 kg

DRUGS (5)
  1. GASMOTIN [Concomitant]
  2. LANSOPRAZOLE [Concomitant]
     Dates: end: 20111201
  3. PACLITAXEL [Suspect]
     Indication: METASTATIC GASTRIC CANCER
     Dates: start: 20120111
  4. FUROSEMIDE [Concomitant]
  5. MAGNESIUM SULFATE [Concomitant]

REACTIONS (2)
  - PULMONARY EMBOLISM [None]
  - FEBRILE NEUTROPENIA [None]
